FAERS Safety Report 14382529 (Version 1)
Quarter: 2018Q1

REPORT INFORMATION
  Report Type: Spontaneous
  Country: US (occurrence: US)
  Receive Date: 20180112
  Receipt Date: 20180112
  Transmission Date: 20180509
  Serious: No
  Sender: FDA-Public Use
  Company Number: US-MYLANLABS-2017M1080183

PATIENT
  Age: 1 Day

DRUGS (3)
  1. INOMAX [Concomitant]
     Active Substance: NITRIC OXIDE
     Indication: PULMONARY HYPERTENSION
     Dosage: UNK
     Dates: start: 20170428, end: 20170502
  2. REMIFENTANIL [Suspect]
     Active Substance: REMIFENTANIL
     Indication: NEONATAL RESPIRATORY FAILURE
     Dosage: UNK
     Dates: start: 20170427, end: 20170501
  3. MILRINONE [Concomitant]
     Active Substance: MILRINONE
     Indication: NEONATAL RESPIRATORY FAILURE
     Dosage: UNK
     Dates: start: 20170428

REACTIONS (2)
  - Jaundice [Recovered/Resolved]
  - Hypotension [Recovered/Resolved]

NARRATIVE: CASE EVENT DATE: 20170428
